FAERS Safety Report 7651066-7 (Version None)
Quarter: 2011Q3

REPORT INFORMATION
  Report Type: 
  Country: None (occurrence: None)
  Receive Date: 20110802
  Receipt Date: 20110720
  Transmission Date: 20111222
  Serious: Yes (Hospitalization, Other)
  Sender: FDA-Public Use
  Company Number: US-ASTRAZENECA-2008UW02425

PATIENT
  Age: 15477 Day
  Sex: Male
  Weight: 111.1 kg

DRUGS (43)
  1. SEROQUEL [Suspect]
     Indication: INSOMNIA
     Dosage: 200 - 300 MG
     Route: 048
     Dates: start: 20020509
  2. SEROQUEL [Suspect]
     Indication: DEPRESSION
     Dosage: 200 - 300 MG
     Route: 048
     Dates: start: 20020509
  3. SEROQUEL [Suspect]
     Dosage: 25MG, 200MG, 300MG
     Route: 048
     Dates: start: 20021001, end: 20070601
  4. TRAZODONE HYDROCHLORIDE [Concomitant]
     Dates: start: 20030101
  5. BENZTROPINE MESYLATE [Concomitant]
     Route: 065
  6. BUSPIRONE HCL [Concomitant]
     Route: 065
  7. SALSALATE [Concomitant]
     Route: 065
  8. GEODON [Concomitant]
     Dates: start: 20030101, end: 20060101
  9. RISPERDAL (RISPERIDONE)/CONSTA [Concomitant]
     Dates: start: 20040101
  10. THORAZINE [Concomitant]
     Dosage: TOOK ONE TIME CANNOT RECALL
  11. CITALOPRAM [Concomitant]
     Route: 065
  12. LUNESTA [Concomitant]
     Route: 065
  13. CARISOPRODOL [Concomitant]
     Route: 065
  14. WELLBUTRIN SR [Concomitant]
     Route: 065
  15. LORTAB [Concomitant]
     Route: 065
  16. AMITRIPTYLINE HCL [Concomitant]
     Route: 065
  17. MORPHINE [Concomitant]
     Dosage: 2 - 4 MG
     Route: 065
  18. TIZANIDINE HCL [Concomitant]
     Route: 065
  19. SEROQUEL [Suspect]
     Indication: BIPOLAR DISORDER
     Dosage: 200 - 300 MG
     Route: 048
     Dates: start: 20020509
  20. SEROQUEL [Suspect]
     Dosage: 25MG, 200MG, 300MG
     Route: 048
     Dates: start: 20021001, end: 20070601
  21. ZOLOFT [Concomitant]
     Route: 065
  22. HYDROXYZINE [Concomitant]
     Route: 065
  23. DIPHENHYDRAMINE HCL [Concomitant]
     Route: 065
  24. RISPERDAL (RISPERIDONE)/CONSTA [Concomitant]
     Dates: start: 20030101
  25. LITHIUM CARBONATE [Concomitant]
     Dates: start: 20060101
  26. EFFEXOR [Concomitant]
     Dosage: 50 - 75 MG
     Route: 065
  27. TOPAMAX [Concomitant]
     Route: 065
  28. REMERON [Concomitant]
     Route: 065
  29. ACCUPRIL [Concomitant]
     Dosage: 10 - 20 MG
     Route: 065
  30. METFORMIN HCL [Concomitant]
     Route: 065
  31. DIAZEPAM [Concomitant]
     Dosage: 5 - 10 MG
     Route: 065
  32. GABAPENTIN [Concomitant]
     Route: 065
  33. ZYPREXA/SYMBYAX (OLANZAPINE) [Concomitant]
     Dates: start: 20071201
  34. OXYCODONE HCL [Concomitant]
     Route: 065
  35. ULTRACET [Concomitant]
     Route: 065
  36. SEROQUEL [Suspect]
     Dosage: 25MG, 200MG, 300MG
     Route: 048
     Dates: start: 20021001, end: 20070601
  37. SEROQUEL [Suspect]
     Dosage: 25MG, 200MG, 300MG
     Route: 048
     Dates: start: 20021001, end: 20070601
  38. HALDOL [Concomitant]
     Dates: start: 20060101
  39. METHYLPREDNISOLONE [Concomitant]
     Route: 065
  40. LISINOPRIL [Concomitant]
     Dosage: 10 - 20 MG
     Route: 065
  41. IBUPROFEN [Concomitant]
     Route: 065
  42. SEROQUEL [Suspect]
     Indication: ANXIETY
     Dosage: 200 - 300 MG
     Route: 048
     Dates: start: 20020509
  43. CELEBREX [Concomitant]
     Route: 065

REACTIONS (10)
  - LUMBAR SPINAL STENOSIS [None]
  - INTERVERTEBRAL DISC PROTRUSION [None]
  - TYPE 1 DIABETES MELLITUS [None]
  - MULTIPLE DRUG OVERDOSE INTENTIONAL [None]
  - HYPERLIPIDAEMIA [None]
  - BACK DISORDER [None]
  - TYPE 2 DIABETES MELLITUS [None]
  - BLOOD CHOLESTEROL INCREASED [None]
  - OVERDOSE [None]
  - HYPOGLYCAEMIA [None]
